FAERS Safety Report 15981719 (Version 2)
Quarter: 2019Q1

REPORT INFORMATION
  Report Type: Spontaneous
  Country: US (occurrence: US)
  Receive Date: 20190219
  Receipt Date: 20190315
  Transmission Date: 20190418
  Serious: No
  Sender: FDA-Public Use
  Company Number: US-ELI_LILLY_AND_COMPANY-US201902008650

PATIENT
  Sex: Male

DRUGS (2)
  1. HUMATROPE [Suspect]
     Active Substance: SOMATROPIN
     Indication: PRODUCT USED FOR UNKNOWN INDICATION
     Dosage: 2 UNK, UNK
     Route: 065
     Dates: start: 201902
  2. HUMATROPE [Suspect]
     Active Substance: SOMATROPIN
     Dosage: 2 MG, UNKNOWN
     Route: 065
     Dates: start: 201902

REACTIONS (2)
  - Injection site pain [Unknown]
  - Underdose [Unknown]
